FAERS Safety Report 4616764-8 (Version None)
Quarter: 2005Q1

REPORT INFORMATION
  Report Type: 
  Country: None (occurrence: None)
  Receive Date: 20050321
  Receipt Date: 20050225
  Transmission Date: 20050727
  Serious: Yes (Hospitalization)
  Sender: FDA-Public Use
  Company Number: 213153

PATIENT
  Age: 50 Year
  Sex: Male
  Weight: 73 kg

DRUGS (4)
  1. AVASTIN [Suspect]
     Indication: COLON CANCER
     Dosage: 370 MG, Q2W, INTRAVENOUS
     Route: 042
     Dates: start: 20050208
  2. OXALIPLATIN (OXALIPLATIN) [Concomitant]
     Indication: COLON CANCER
     Dosage: 160 MG, Q2W, INTRAVENOUS
     Route: 042
     Dates: start: 20050208
  3. FLUOROURACIL [Suspect]
     Indication: COLON CANCER
     Dosage: 775 MG, QDX2D/14DC, IV BOLUS; 1150 MG, QDX2D/14DC, INTRAVENOUS
     Route: 040
     Dates: start: 20050208
  4. FOLINIC ACID [Suspect]
     Indication: COLON CANCER
     Dosage: 375 MG, QDX2D/14DC, INTRAVENOUS
     Route: 042
     Dates: start: 20050208

REACTIONS (2)
  - ABDOMINAL PAIN [None]
  - PYREXIA [None]
